FAERS Safety Report 9390399 (Version 3)
Quarter: 2014Q3

REPORT INFORMATION
  Report Type: Spontaneous
  Country: US (occurrence: None)
  Receive Date: 20130701
  Receipt Date: 20140801
  Transmission Date: 20150326
  Serious: Yes (Hospitalization)
  Sender: FDA-Public Use
  Company Number: 2013US001500

PATIENT
  Age: 45 Year
  Sex: Male
  Weight: 87 kg

DRUGS (10)
  1. REGLAN (METOCLOPRAMIDE) [Concomitant]
  2. ABILIFY [Concomitant]
     Active Substance: ARIPIPRAZOLE
  3. KLOR-CON (POTASSIUM) [Concomitant]
  4. AMLODIPINE [Concomitant]
     Active Substance: AMLODIPINE BESYLATE
  5. TRILEPTAL [Concomitant]
     Active Substance: OXCARBAZEPINE
  6. VITAMIN D2 (VITAMIN D2) [Concomitant]
  7. ICLUSIG [Suspect]
     Active Substance: PONATINIB
     Indication: CHRONIC MYELOID LEUKAEMIA
     Route: 048
     Dates: start: 20130402, end: 20130415
  8. FLEXERIL [Concomitant]
     Active Substance: CYCLOBENZAPRINE HYDROCHLORIDE
  9. METOPROLOL (METOPROLOL) [Concomitant]
     Active Substance: METOPROLOL
  10. HYDROCHLOROTHIAZIDE (HYDROCHLOROTHIAZIDE) [Concomitant]
     Active Substance: HYDROCHLOROTHIAZIDE

REACTIONS (9)
  - Hepatotoxicity [None]
  - Blast cell crisis [None]
  - Alopecia [None]
  - Liver function test abnormal [None]
  - Blood alkaline phosphatase [None]
  - Staphylococcal infection [None]
  - Blood sodium increased [None]
  - Haemoglobin decreased [None]
  - Haematocrit decreased [None]

NARRATIVE: CASE EVENT DATE: 20130407
